FAERS Safety Report 15506220 (Version 1)
Quarter: 2018Q4

REPORT INFORMATION
  Report Type: Report from Study
  Country: US (occurrence: US)
  Receive Date: 20181016
  Receipt Date: 20181016
  Transmission Date: 20190205
  Serious: Yes (Other)
  Sender: FDA-Public Use
  Company Number: US-UCBSA-2018045597

PATIENT
  Sex: Male

DRUGS (1)
  1. LEVETIRACETAM. [Suspect]
     Active Substance: LEVETIRACETAM
     Indication: PRODUCT USED FOR UNKNOWN INDICATION
     Dosage: UNK

REACTIONS (7)
  - Head injury [Unknown]
  - Product dose omission [Unknown]
  - Bipolar disorder [Unknown]
  - Seizure [Unknown]
  - Abnormal behaviour [Unknown]
  - Feeling drunk [Unknown]
  - Depression [Unknown]
